FAERS Safety Report 17036429 (Version 1)
Quarter: 2019Q4

REPORT INFORMATION
  Report Type: Spontaneous
  Country: US (occurrence: US)
  Receive Date: 20191115
  Receipt Date: 20191115
  Transmission Date: 20200122
  Serious: Yes (Other)
  Sender: FDA-Public Use
  Company Number: US-BRISTOL-MYERS SQUIBB COMPANY-BMS-2019-108205

PATIENT
  Age: 60 Year
  Sex: Male

DRUGS (1)
  1. WARFARIN SODIUM. [Suspect]
     Active Substance: WARFARIN SODIUM
     Indication: AORTIC THROMBOSIS
     Dosage: UNK
     Route: 065

REACTIONS (2)
  - Anticoagulation drug level above therapeutic [Unknown]
  - Skin necrosis [Unknown]
